FAERS Safety Report 10102463 (Version 2)
Quarter: 2014Q2

REPORT INFORMATION
  Report Type: Other
  Country: US (occurrence: US)
  Receive Date: 20140424
  Receipt Date: 20140626
  Transmission Date: 20141212
  Serious: Yes (Hospitalization, Other)
  Sender: FDA-Public Use
  Company Number: US-GSKPPD-2014GSK000351

PATIENT
  Age: 57 Year
  Sex: Male
  Weight: 87.62 kg

DRUGS (8)
  1. AVANDIA [Suspect]
     Indication: DIABETES MELLITUS
     Dosage: AVANDIA WAS NOT LISTED AMONG THE PATIENT^S ADMISSION/DISCHARGE RECORDS.
     Route: 048
  2. CLOPIDOGREL BISULFATE [Suspect]
     Route: 048
  3. SIMVASTATIN [Concomitant]
     Route: 048
  4. ACETAMINOPHEN [Concomitant]
     Route: 048
  5. ASPIRIN [Concomitant]
     Route: 048
  6. ASPIRIN [Concomitant]
     Route: 048
  7. LISINOPRIL [Concomitant]
     Route: 048
  8. LISINOPRIL [Concomitant]
     Route: 048

REACTIONS (1)
  - Myocardial infarction [Recovered/Resolved]
